FAERS Safety Report 23962253 (Version 2)
Quarter: 2025Q1

REPORT INFORMATION
  Report Type: Spontaneous
  Country: US (occurrence: US)
  Receive Date: 20240611
  Receipt Date: 20250221
  Transmission Date: 20250408
  Serious: Yes (Other)
  Sender: RANBAXY
  Company Number: US-SUN PHARMACEUTICAL INDUSTRIES LTD-2024R1-450236

PATIENT
  Age: 85 Year
  Sex: Male

DRUGS (4)
  1. CINACALCET [Suspect]
     Active Substance: CINACALCET
     Indication: Hypercalcaemia
     Route: 065
  2. CINACALCET [Suspect]
     Active Substance: CINACALCET
     Indication: Abnormal behaviour
  3. CALCITONIN [Suspect]
     Active Substance: CALCITONIN
     Indication: Hypercalcaemia
     Route: 065
  4. CALCITONIN [Suspect]
     Active Substance: CALCITONIN
     Indication: Abnormal behaviour

REACTIONS (1)
  - Therapy non-responder [Unknown]
